FAERS Safety Report 19445203 (Version 2)
Quarter: 2021Q2

REPORT INFORMATION
  Report Type: Spontaneous
  Country: US (occurrence: US)
  Receive Date: 20210621
  Receipt Date: 20210629
  Transmission Date: 20210717
  Serious: No
  Sender: FDA-Public Use
  Company Number: US-SA-2021SA197621

PATIENT
  Sex: Male

DRUGS (9)
  1. FLOVENT HFA [Concomitant]
     Active Substance: FLUTICASONE PROPIONATE
  2. DUPIXENT [Suspect]
     Active Substance: DUPILUMAB
     Indication: SINUS POLYP DEGENERATION
     Dosage: 300 MG, QOW
     Route: 058
     Dates: start: 2019, end: 2020
  3. DUPIXENT [Suspect]
     Active Substance: DUPILUMAB
     Indication: NASAL POLYPS
  4. MUPIROCIN. [Concomitant]
     Active Substance: MUPIROCIN
  5. PREDNISONE. [Concomitant]
     Active Substance: PREDNISONE
  6. EMGALITY [Concomitant]
     Active Substance: GALCANEZUMAB-GNLM
  7. DUPIXENT [Suspect]
     Active Substance: DUPILUMAB
     Indication: ASTHMA
  8. SUMATRIPTAN. [Concomitant]
     Active Substance: SUMATRIPTAN
  9. DOXYCYCLINE. [Concomitant]
     Active Substance: DOXYCYCLINE

REACTIONS (7)
  - Insomnia [Unknown]
  - Wheezing [Unknown]
  - Nasal congestion [Unknown]
  - COVID-19 [Unknown]
  - Sinus disorder [Unknown]
  - Product use in unapproved indication [Unknown]
  - Asthma [Unknown]
